APPROVED DRUG PRODUCT: TENEX
Active Ingredient: GUANFACINE HYDROCHLORIDE
Strength: EQ 1MG BASE **Federal Register determination that product was not discontinued or withdrawn for safety or effectiveness reasons**
Dosage Form/Route: TABLET;ORAL
Application: N019032 | Product #001
Applicant: PROMIUS PHARMA LLC
Approved: Oct 27, 1986 | RLD: Yes | RS: No | Type: DISCN